FAERS Safety Report 19268360 (Version 1)
Quarter: 2021Q2

REPORT INFORMATION
  Report Type: Other
  Country: US (occurrence: US)
  Receive Date: 20210517
  Receipt Date: 20210517
  Transmission Date: 20210717
  Serious: Yes (Other)
  Sender: FDA-Public Use
  Company Number: US-AMNEAL PHARMACEUTICALS-2021-AMRX-01648

PATIENT

DRUGS (1)
  1. METHYLPHENIDATE HYDROCHLORIDE. [Suspect]
     Active Substance: METHYLPHENIDATE HYDROCHLORIDE
     Indication: ATTENTION DEFICIT HYPERACTIVITY DISORDER
     Dosage: UNK
     Route: 065
     Dates: start: 20210325

REACTIONS (9)
  - Panic attack [Unknown]
  - Drug delivery system issue [Unknown]
  - Anxiety [Unknown]
  - Depression [Unknown]
  - Product substitution issue [Unknown]
  - Suicidal ideation [Unknown]
  - Drug ineffective [Unknown]
  - Loss of personal independence in daily activities [Unknown]
  - Mood swings [Unknown]

NARRATIVE: CASE EVENT DATE: 20210328
